FAERS Safety Report 7130255-4 (Version None)
Quarter: 2010Q4

REPORT INFORMATION
  Report Type: 
  Country: None (occurrence: None)
  Receive Date: 20101116
  Receipt Date: 20101109
  Transmission Date: 20110411
  Serious: Yes (Hospitalization, Other)
  Sender: FDA-Public Use
  Company Number: 021416

PATIENT
  Sex: Male
  Weight: 93 kg

DRUGS (9)
  1. DEPONIT [Suspect]
     Indication: ANGINA PECTORIS
     Dosage: (5 MG, ONE PATCH DAILY TRANSDERMAL)
     Route: 062
     Dates: start: 20070101
  2. XALATAN [Concomitant]
  3. ALPHAGAN /01341101/ [Concomitant]
  4. DIAMOX /00016901/ [Concomitant]
  5. ASTRIN [Concomitant]
  6. PULMICORT [Concomitant]
  7. SLOZEM [Concomitant]
  8. ASPIRIN [Concomitant]
  9. FLUOROMETHOLONE [Concomitant]

REACTIONS (2)
  - GLAUCOMA [None]
  - MALAISE [None]
